FAERS Safety Report 7405090-X (Version None)
Quarter: 2011Q2

REPORT INFORMATION
  Report Type: 
  Country: None (occurrence: None)
  Receive Date: 20110411
  Receipt Date: 20110329
  Transmission Date: 20111010
  Serious: No
  Sender: FDA-Public Use
  Company Number: US-ASTELLAS-2011US000987

PATIENT
  Sex: Male

DRUGS (3)
  1. VIBATIV [Suspect]
     Indication: STAPHYLOCOCCAL INFECTION
     Dosage: UNK
     Route: 042
  2. VIBATIV [Suspect]
     Indication: SEPSIS
  3. VIBATIV [Suspect]
     Indication: EVIDENCE BASED TREATMENT

REACTIONS (3)
  - URINARY TRACT DISORDER [None]
  - SWELLING [None]
  - PAIN [None]
